FAERS Safety Report 12992240 (Version 2)
Quarter: 2016Q4

REPORT INFORMATION
  Report Type: Report from Study
  Country: FR (occurrence: FR)
  Receive Date: 20161201
  Receipt Date: 20161230
  Transmission Date: 20170207
  Serious: Yes (Death)
  Sender: FDA-Public Use
  Company Number: FR-ROCHE-1862272

PATIENT

DRUGS (1)
  1. ALTEPLASE [Suspect]
     Active Substance: ALTEPLASE
     Indication: CEREBRAL ISCHAEMIA
     Dosage: 0.9 MG/KG RTPA (10% IN BOLUS, 90% OVER A 60-MINUTE PERIOD, WITH A MAXIMUM OF 90 MG)
     Route: 042

REACTIONS (1)
  - Death [Fatal]
